FAERS Safety Report 9509362 (Version 1)
Quarter: 2013Q3

REPORT INFORMATION
  Report Type: Spontaneous
  Country: US (occurrence: US)
  Receive Date: 20130909
  Receipt Date: 20130909
  Transmission Date: 20140515
  Serious: No
  Sender: FDA-Public Use
  Company Number: US-BRISTOL-MYERS SQUIBB COMPANY-18988683

PATIENT
  Age: 69 Year
  Sex: Female
  Weight: 90.7 kg

DRUGS (10)
  1. ABILIFY [Suspect]
     Indication: BIPOLAR DISORDER
     Dates: start: 200612
  2. DEPAKOTE [Concomitant]
  3. ATENOLOL [Concomitant]
  4. AMLODIPINE [Concomitant]
  5. PRAVASTATINE [Concomitant]
  6. MELOXICAM [Concomitant]
  7. LORATADINE [Concomitant]
  8. ASPIRIN [Concomitant]
  9. LASIX [Concomitant]
  10. KLOR-CON [Concomitant]

REACTIONS (3)
  - Drug dose omission [Unknown]
  - Insomnia [Unknown]
  - Panic disorder [Unknown]
